FAERS Safety Report 14057861 (Version 2)
Quarter: 2018Q1

REPORT INFORMATION
  Report Type: Report from Study
  Country: DE (occurrence: DE)
  Receive Date: 20171006
  Receipt Date: 20180315
  Transmission Date: 20180508
  Serious: Yes (Hospitalization)
  Sender: FDA-Public Use
  Company Number: DE-JNJFOC-20171000120

PATIENT
  Age: 80 Year
  Sex: Male
  Weight: 109 kg

DRUGS (1)
  1. YONDELIS [Suspect]
     Active Substance: TRABECTEDIN
     Indication: SOFT TISSUE SARCOMA
     Dosage: CYCLE 1; 3660 MG; CYCLE 1
     Route: 042
     Dates: start: 20170906

REACTIONS (1)
  - Pancytopenia [Recovered/Resolved]

NARRATIVE: CASE EVENT DATE: 20170911
